FAERS Safety Report 7132173-4 (Version None)
Quarter: 2010Q4

REPORT INFORMATION
  Report Type: 
  Country: None (occurrence: None)
  Receive Date: 20101202
  Receipt Date: 20101122
  Transmission Date: 20110411
  Serious: Yes (Hospitalization)
  Sender: FDA-Public Use
  Company Number: SE-NOVOPROD-318877

PATIENT
  Age: 64 Year
  Sex: Female

DRUGS (15)
  1. VICTOZA [Suspect]
     Indication: PRODUCT USED FOR UNKNOWN INDICATION
     Dosage: UNK
     Route: 065
     Dates: start: 20100901, end: 20100901
  2. INSULATARD [Concomitant]
  3. KREDEX [Concomitant]
  4. IMPUGAN [Concomitant]
  5. METFORMIN [Concomitant]
  6. COZAAR [Concomitant]
  7. SALURES [Concomitant]
  8. AERIUS                             /01009701/ [Concomitant]
  9. TRIOBE                             /01079901/ [Concomitant]
  10. KALCIPOS-D [Concomitant]
     Dosage: 500/400 MG/IE
  11. AMITRIPTYLINE HCL [Concomitant]
  12. DUROFERON [Concomitant]
  13. ATROVENT [Concomitant]
  14. VENTOLIN [Concomitant]
  15. MAGNESIUM [Concomitant]
     Dosage: 120 MG, UNK

REACTIONS (1)
  - BLOOD CREATININE INCREASED [None]
